FAERS Safety Report 6526903-X (Version None)
Quarter: 2010Q1

REPORT INFORMATION
  Report Type: 
  Country: None (occurrence: None)
  Receive Date: 20100105
  Receipt Date: 20091229
  Transmission Date: 20100710
  Serious: Yes (Other)
  Sender: FDA-Public Use
  Company Number: BR-PFIZER INC-2009277069

PATIENT
  Age: 72 Year
  Sex: Male
  Weight: 60.5 kg

DRUGS (5)
  1. XALATAN [Suspect]
     Indication: EYE DISORDER
     Dosage: 3 UG, 1X/DAY
     Route: 047
  2. XALATAN [Suspect]
     Indication: GLAUCOMA
  3. COSOPT [Concomitant]
     Dosage: UNK
     Dates: start: 20060901
  4. DIAMICRON [Concomitant]
     Indication: DIABETES MELLITUS
     Dosage: UNK
  5. SOTALOL [Concomitant]
     Indication: HEART RATE IRREGULAR
     Dosage: UNK

REACTIONS (1)
  - CATARACT [None]
